FAERS Safety Report 17356655 (Version 1)
Quarter: 2020Q1

REPORT INFORMATION
  Report Type: Report from Study
  Country: JP (occurrence: JP)
  Receive Date: 20200131
  Receipt Date: 20200131
  Transmission Date: 20200409
  Serious: Yes (Hospitalization, Other)
  Sender: FDA-Public Use
  Company Number: JP-JNJFOC-20200149309

PATIENT

DRUGS (3)
  1. DEXAMETHASONE. [Suspect]
     Active Substance: DEXAMETHASONE
     Indication: PLASMA CELL MYELOMA
     Route: 048
  2. DARZALEX [Suspect]
     Active Substance: DARATUMUMAB
     Indication: PLASMA CELL MYELOMA
     Route: 041
  3. REVLIMID [Suspect]
     Active Substance: LENALIDOMIDE
     Indication: PLASMA CELL MYELOMA
     Route: 048

REACTIONS (22)
  - Sepsis [Unknown]
  - Infection [Unknown]
  - Constipation [Unknown]
  - Platelet count decreased [Unknown]
  - Anaemia [Unknown]
  - Hepatic enzyme increased [Unknown]
  - Febrile neutropenia [Unknown]
  - Adverse event [Unknown]
  - Nausea [Unknown]
  - Arthralgia [Unknown]
  - Insomnia [Unknown]
  - Neutropenia [Unknown]
  - Diarrhoea [Unknown]
  - White blood cell count decreased [Unknown]
  - Malaise [Unknown]
  - Dysgeusia [Unknown]
  - Pneumonia [Unknown]
  - Pyrexia [Unknown]
  - Headache [Unknown]
  - Infusion related reaction [Unknown]
  - Influenza like illness [Unknown]
  - Oedema [Unknown]
